FAERS Safety Report 7596301-9 (Version None)
Quarter: 2011Q3

REPORT INFORMATION
  Report Type: 
  Country: None (occurrence: None)
  Receive Date: 20110707
  Receipt Date: 20110623
  Transmission Date: 20111222
  Serious: Yes (Other)
  Sender: FDA-Public Use
  Company Number: BG-MYLANLABS-2011S1013529

PATIENT
  Age: 12 Year
  Sex: Female

DRUGS (2)
  1. METHYLPREDNISOLONE [Concomitant]
     Indication: DERMATOMYOSITIS
     Route: 065
  2. KETOCONAZOLE [Suspect]
     Indication: PROPHYLAXIS
     Route: 048

REACTIONS (1)
  - ACUTE GENERALISED EXANTHEMATOUS PUSTULOSIS [None]
